FAERS Safety Report 8183841-7 (Version None)
Quarter: 2012Q1

REPORT INFORMATION
  Report Type: 
  Country: None (occurrence: None)
  Receive Date: 20120305
  Receipt Date: 20120224
  Transmission Date: 20120608
  Serious: Yes (Hospitalization)
  Sender: FDA-Public Use
  Company Number: JP-PFIZER INC-2012044067

PATIENT
  Age: 68 Year
  Sex: Male
  Weight: 61.7 kg

DRUGS (13)
  1. HIRUDOID [Concomitant]
     Dosage: UNK
     Route: 061
     Dates: start: 20110120
  2. LEVOFLOXACIN [Concomitant]
     Dosage: 500 MG/DAY
     Route: 048
     Dates: start: 20120209, end: 20120216
  3. AXITINIB [Suspect]
     Indication: METASTATIC RENAL CELL CARCINOMA
     Dosage: 5 MG, 2X/DAY
     Route: 048
     Dates: start: 20110114, end: 20110921
  4. LORCAM [Concomitant]
     Dosage: 12 MG/DAY
     Route: 048
  5. TRICHLORMETHIAZIDE [Concomitant]
     Dosage: 2 MG/DAY
     Route: 048
     Dates: start: 20110810
  6. TRAMADOL HYDROCHLORIDE [Concomitant]
     Dosage: 75 MG/DAY
     Route: 048
  7. AXITINIB [Suspect]
     Dosage: 3 MG, 2X/DAY
     Route: 048
     Dates: start: 20110925, end: 20120217
  8. ZOMETA [Suspect]
     Dosage: 4 MG, MONTHLY
     Dates: start: 20110101, end: 20110810
  9. DIOVAN [Concomitant]
     Dosage: 80 MG/DAY
     Route: 048
     Dates: start: 20111001
  10. LANSOPRAZOLE [Concomitant]
     Dosage: 15 MG/DAY
     Route: 048
     Dates: start: 20110127
  11. AMLODIPINE [Concomitant]
     Dosage: 5 MG/DAY
     Route: 048
     Dates: start: 20111001
  12. CEFAZOLIN SODIUM [Concomitant]
     Dosage: 3 TABLETS/DAY
     Route: 048
     Dates: start: 20111020
  13. MAGNESIUM SULFATE [Concomitant]
     Dosage: 1500 MG/DAY
     Route: 048
     Dates: start: 20110922

REACTIONS (2)
  - GINGIVITIS [None]
  - OSTEOMYELITIS [None]
